FAERS Safety Report 4682718-9 (Version None)
Quarter: 2005Q2

REPORT INFORMATION
  Report Type: 
  Country: None (occurrence: None)
  Receive Date: 20050606
  Receipt Date: 20050524
  Transmission Date: 20051028
  Serious: Yes (Hospitalization)
  Sender: FDA-Public Use
  Company Number: AU-NOVOPROD-244387

PATIENT
  Age: 53 Year
  Sex: Male

DRUGS (2)
  1. ACTRAPID [Suspect]
     Indication: ILL-DEFINED DISORDER
  2. PROTAPHANE [Suspect]
     Indication: ILL-DEFINED DISORDER

REACTIONS (3)
  - BLOOD GLUCOSE ABNORMAL [None]
  - BLOOD GLUCOSE DECREASED [None]
  - PNEUMONIA [None]
